FAERS Safety Report 6534129-9 (Version None)
Quarter: 2009Q4

REPORT INFORMATION
  Report Type: 
  Country: None (occurrence: None)
  Receive Date: 20091214
  Receipt Date: 20081028
  Transmission Date: 20100525
  Serious: Yes (Other)
  Sender: FDA-Public Use
  Company Number: 589112

PATIENT
  Age: 38 Year
  Sex: Male
  Weight: 67.1 kg

DRUGS (8)
  1. PEGASYS [Suspect]
     Indication: HEPATITIS C
     Dosage: 1 PER WEEK SUBCUTANEOUS
     Route: 058
     Dates: start: 20080425
  2. RIBAVIRIN [Suspect]
     Indication: HEPATITIS C
     Dosage: 1000 MG DAILY ORAL
     Route: 048
     Dates: start: 20080425
  3. KLONOPIN [Concomitant]
  4. NEXIUM [Concomitant]
  5. MAXALT [Concomitant]
  6. AMBIEN [Concomitant]
  7. ZYPREXA [Concomitant]
  8. TRILEPTAL [Concomitant]

REACTIONS (1)
  - AGGRESSION [None]
